FAERS Safety Report 4845453-X (Version None)
Quarter: 2005Q4

REPORT INFORMATION
  Report Type: 
  Country: None (occurrence: None)
  Receive Date: 20051125
  Receipt Date: 20051115
  Transmission Date: 20060501
  Serious: Yes (Death, Hospitalization)
  Sender: FDA-Public Use
  Company Number: 2005120729

PATIENT
  Age: 38 Year
  Sex: Male
  Weight: 100 kg

DRUGS (18)
  1. ATORVASTATIN CALCIUM [Suspect]
     Indication: CORONARY ARTERY DISEASE
     Dosage: 80 MG (1 IN 1 D) ORAL
     Route: 048
     Dates: start: 20050821, end: 20050825
  2. DOBUTREX [Concomitant]
  3. XYLOCAINE [Concomitant]
  4. HEPARIN [Concomitant]
  5. MIDAZOLAM HCL [Concomitant]
  6. SUPRARENIN INJ [Concomitant]
  7. INSULIN [Concomitant]
  8. REOPRO [Concomitant]
  9. SUFENTA [Concomitant]
  10. RISPERDAL [Concomitant]
  11. TAZOBAC              (PIPERACILLIN SODIUM, TAZOBACTAM SODIUM) [Concomitant]
  12. SODIUM BICARBONATE IN PLASTIC CONTAINER [Concomitant]
  13. FUROSEMIDE [Concomitant]
  14. NEXIUM [Concomitant]
  15. ISCOVER (CLOPIDOGREL SULFATE) [Concomitant]
  16. ACETYLSALICYLIC ACID SRT [Concomitant]
  17. ALL OTHER THERAPEUTIC PRODUCTS [Concomitant]
  18. PASPERTIN                   (METOCLOPRAMIDE HYDROCHLORIDE) [Concomitant]

REACTIONS (9)
  - BLOOD CREATINE PHOSPHOKINASE MB INCREASED [None]
  - CARDIOGENIC SHOCK [None]
  - DIALYSIS [None]
  - GENERAL PHYSICAL HEALTH DETERIORATION [None]
  - MULTI-ORGAN FAILURE [None]
  - PNEUMONIA [None]
  - RENAL FAILURE [None]
  - RHABDOMYOLYSIS [None]
  - SEPTIC SHOCK [None]
